FAERS Safety Report 22868089 (Version 2)
Quarter: 2023Q4

REPORT INFORMATION
  Report Type: Spontaneous
  Country: JP (occurrence: JP)
  Receive Date: 20230825
  Receipt Date: 20231229
  Transmission Date: 20240110
  Serious: Yes (Hospitalization, Disabling, Other)
  Sender: FDA-Public Use
  Company Number: JP-BAYER-2023A116041

PATIENT
  Age: 71 Year
  Sex: Male

DRUGS (1)
  1. STIVARGA [Suspect]
     Active Substance: REGORAFENIB
     Indication: Colon cancer recurrent
     Dosage: UNK
     Dates: start: 20230706, end: 20230724

REACTIONS (13)
  - Rhabdomyolysis [Recovered/Resolved with Sequelae]
  - Muscular weakness [None]
  - Pyrexia [Recovered/Resolved]
  - Mobility decreased [Recovered/Resolved]
  - Inflammatory marker increased [Recovered/Resolved]
  - Blood creatine phosphokinase increased [Recovered/Resolved]
  - Prerenal failure [None]
  - Dehydration [None]
  - Decreased appetite [None]
  - Malaise [None]
  - Hypophagia [None]
  - Fall [None]
  - Contusion [None]

NARRATIVE: CASE EVENT DATE: 20230701
